FAERS Safety Report 24113769 (Version 1)
Quarter: 2024Q3

REPORT INFORMATION
  Report Type: Spontaneous
  Country: EG (occurrence: EG)
  Receive Date: 20240720
  Receipt Date: 20240720
  Transmission Date: 20241017
  Serious: Yes (Life-Threatening, Hospitalization, Other)
  Sender: HIKMA
  Company Number: EG-HIKMA PHARMACEUTICALS-EG-H14001-24-06512

PATIENT

DRUGS (2)
  1. CARBOPLATIN [Suspect]
     Active Substance: CARBOPLATIN
     Indication: Ovarian cancer
     Dosage: 500 MILLIGRAM, 3W
     Route: 041
     Dates: start: 20240526
  2. PACLITAXEL [Suspect]
     Active Substance: PACLITAXEL
     Indication: Ovarian cancer
     Dosage: 135 MILLIGRAM, 3W
     Route: 041
     Dates: start: 20240526

REACTIONS (6)
  - Dyspnoea [Unknown]
  - Bronchospasm [Unknown]
  - Chest pain [Unknown]
  - Flushing [Unknown]
  - Type I hypersensitivity [Unknown]
  - Hyperhidrosis [Unknown]

NARRATIVE: CASE EVENT DATE: 20240526
